FAERS Safety Report 20846637 (Version 1)
Quarter: 2022Q2

REPORT INFORMATION
  Report Type: Spontaneous
  Country: SL (occurrence: SL)
  Receive Date: 20220519
  Receipt Date: 20220519
  Transmission Date: 20220721
  Serious: Yes (Death)
  Sender: FDA-Public Use
  Company Number: SL-STRIDES ARCOLAB LIMITED-2022SP005379

PATIENT
  Age: 39 Year
  Sex: Male

DRUGS (2)
  1. ALBENDAZOLE [Suspect]
     Active Substance: ALBENDAZOLE
     Indication: Drug therapy
     Dosage: UNK
     Route: 065
  2. IVERMECTIN [Suspect]
     Active Substance: IVERMECTIN
     Indication: Drug therapy
     Dosage: UNK
     Route: 065

REACTIONS (1)
  - Death [Fatal]
